FAERS Safety Report 4546772-7 (Version None)
Quarter: 2005Q1

REPORT INFORMATION
  Report Type: 
  Country: None (occurrence: None)
  Receive Date: 20050105
  Receipt Date: 20041217
  Transmission Date: 20050727
  Serious: Yes (Hospitalization)
  Sender: FDA-Public Use
  Company Number: 200310497BFR

PATIENT
  Age: 42 Year
  Sex: Male
  Weight: 59 kg

DRUGS (9)
  1. STALTOR (CERIVASTATIN) [Suspect]
     Dosage: ORAL
     Route: 048
     Dates: start: 20000904, end: 20001101
  2. TARDYFERON [Concomitant]
  3. IMOVANE [Concomitant]
  4. DAFALGAN [Concomitant]
  5. TAMIK [Concomitant]
  6. MOPRAL [Concomitant]
  7. DIPRIVAN [Concomitant]
  8. PRO-DAFALGAN [Concomitant]
  9. NUBAIN [Concomitant]

REACTIONS (20)
  - ANAEMIA [None]
  - ASTHENIA [None]
  - DEPRESSION [None]
  - ECZEMA [None]
  - ERECTILE DYSFUNCTION [None]
  - FIBROMYALGIA [None]
  - GROIN PAIN [None]
  - HEADACHE [None]
  - LYMPHADENOPATHY [None]
  - LYMPHOID TISSUE HYPERPLASIA [None]
  - MYALGIA [None]
  - NAUSEA [None]
  - ORAL CANDIDIASIS [None]
  - OROPHARYNGEAL SWELLING [None]
  - PSYCHOSOMATIC DISEASE [None]
  - RED BLOOD CELL COUNT INCREASED [None]
  - TESTICULAR PAIN [None]
  - TINNITUS [None]
  - TOOTH INFECTION [None]
  - VISUAL DISTURBANCE [None]
